FAERS Safety Report 7475831-4 (Version None)
Quarter: 2011Q2

REPORT INFORMATION
  Report Type: 
  Country: None (occurrence: None)
  Receive Date: 20110512
  Receipt Date: 20110506
  Transmission Date: 20111010
  Serious: Yes (Other)
  Sender: FDA-Public Use
  Company Number: US-ABBOTT-11P-163-0714626-00

PATIENT
  Weight: 63.56 kg

DRUGS (5)
  1. LUPRON DEPOT [Suspect]
     Indication: ENDOMETRIOSIS
     Dates: start: 20101001, end: 20101117
  2. LUPRON DEPOT [Suspect]
     Indication: UTERINE LEIOMYOMA
  3. SYNTHROID [Suspect]
     Indication: HYPOTHYROIDISM
  4. CLONAZEPAM [Concomitant]
     Indication: PRODUCT USED FOR UNKNOWN INDICATION
  5. TRAVATAN [Concomitant]
     Indication: INTRAOCULAR PRESSURE TEST ABNORMAL
     Dates: start: 20090101

REACTIONS (27)
  - HOT FLUSH [None]
  - INSOMNIA [None]
  - BONE PAIN [None]
  - FATIGUE [None]
  - VISION BLURRED [None]
  - BLOOD THYROID STIMULATING HORMONE ABNORMAL [None]
  - NIGHT SWEATS [None]
  - ANGER [None]
  - PAIN [None]
  - INTRAOCULAR PRESSURE INCREASED [None]
  - THYROID FUNCTION TEST ABNORMAL [None]
  - WEIGHT INCREASED [None]
  - NAUSEA [None]
  - VOMITING [None]
  - PALPITATIONS [None]
  - PARAESTHESIA [None]
  - DRUG INTOLERANCE [None]
  - MOOD SWINGS [None]
  - MEMORY IMPAIRMENT [None]
  - AGGRESSION [None]
  - ARTHRALGIA [None]
  - BLOOD CHOLESTEROL INCREASED [None]
  - BREAST ENLARGEMENT [None]
  - MIGRAINE [None]
  - DISTURBANCE IN ATTENTION [None]
  - HYPOAESTHESIA [None]
  - BREAST TENDERNESS [None]
